FAERS Safety Report 23140689 (Version 1)
Quarter: 2023Q4

REPORT INFORMATION
  Report Type: Spontaneous
  Country: CN (occurrence: CN)
  Receive Date: 20231103
  Receipt Date: 20231103
  Transmission Date: 20240109
  Serious: Yes (Hospitalization)
  Sender: FDA-Public Use
  Company Number: CN-ABBVIE-5478204

PATIENT
  Age: 73 Year
  Sex: Female
  Weight: 53 kg

DRUGS (1)
  1. VENETOCLAX [Suspect]
     Active Substance: VENETOCLAX
     Indication: Leukaemia
     Route: 048
     Dates: start: 20230913, end: 20230919

REACTIONS (2)
  - Acute myeloid leukaemia [Unknown]
  - Granulocytopenia [Recovering/Resolving]

NARRATIVE: CASE EVENT DATE: 20230901
